FAERS Safety Report 19796900 (Version 1)
Quarter: 2021Q3

REPORT INFORMATION
  Report Type: Report from Study
  Country: US (occurrence: US)
  Receive Date: 20210907
  Receipt Date: 20210907
  Transmission Date: 20211014
  Serious: No
  Sender: FDA-Public Use
  Company Number: NVSC2021US202306

PATIENT
  Age: 48 Year
  Sex: Female

DRUGS (1)
  1. KESIMPTA [Suspect]
     Active Substance: OFATUMUMAB
     Indication: RELAPSING MULTIPLE SCLEROSIS
     Dosage: 20 MG, QW (BENEATH THE SKIN USUALLY VIA INJECTION)
     Route: 058
     Dates: start: 20210805

REACTIONS (3)
  - Product dose omission issue [Not Recovered/Not Resolved]
  - Accidental exposure to product [Not Recovered/Not Resolved]
  - Wrong technique in product usage process [Not Recovered/Not Resolved]

NARRATIVE: CASE EVENT DATE: 20210812
